FAERS Safety Report 5698163-3 (Version None)
Quarter: 2008Q2

REPORT INFORMATION
  Report Type: 
  Country: None (occurrence: None)
  Receive Date: 20080408
  Receipt Date: 20080328
  Transmission Date: 20081010
  Serious: Yes (Hospitalization, Other)
  Sender: FDA-Public Use
  Company Number: GB-PFIZER INC-2008017694

PATIENT
  Age: 55 Year
  Sex: Female

DRUGS (7)
  1. SPIRONOLACTONE [Suspect]
     Dosage: DAILY DOSE:50MG-TEXT:50 MG-FREQ:DAILY
     Route: 048
     Dates: start: 20080124, end: 20080205
  2. FUROSEMIDE [Suspect]
     Dosage: DAILY DOSE:40MG-TEXT:40 MG-FREQ:DAILY
     Route: 048
     Dates: start: 20080104, end: 20080205
  3. TIGECYCLINE [Suspect]
     Route: 042
     Dates: start: 20080128, end: 20080204
  4. VANCOMYCIN [Suspect]
     Route: 042
     Dates: start: 20080128, end: 20080204
  5. OMEPRAZOLE [Concomitant]
     Route: 048
  6. THIAMINE [Concomitant]
     Route: 048
  7. VITAMIN B [Concomitant]
     Route: 048

REACTIONS (2)
  - EOSINOPHIL COUNT INCREASED [None]
  - RASH MACULAR [None]
